FAERS Safety Report 6927477-1 (Version None)
Quarter: 2010Q3

REPORT INFORMATION
  Report Type: 
  Country: None (occurrence: None)
  Receive Date: 20100817
  Receipt Date: 20100809
  Transmission Date: 20110219
  Serious: Yes (Other)
  Sender: FDA-Public Use
  Company Number: IT-JNJFOC-20100607417

PATIENT
  Weight: 100 kg

DRUGS (1)
  1. RISPERDAL [Suspect]
     Indication: SELF INJURIOUS BEHAVIOUR
     Route: 048

REACTIONS (2)
  - SELF INJURIOUS BEHAVIOUR [None]
  - SLUGGISHNESS [None]
